FAERS Safety Report 18209550 (Version 1)
Quarter: 2020Q3

REPORT INFORMATION
  Report Type: Spontaneous
  Country: JP (occurrence: JP)
  Receive Date: 20200828
  Receipt Date: 20200828
  Transmission Date: 20201103
  Serious: Yes (Other)
  Sender: FDA-Public Use
  Company Number: JP-CELGENEUS-JPN-20200806576

PATIENT
  Age: 56 Year
  Sex: Male

DRUGS (6)
  1. ABRAXANE [Suspect]
     Active Substance: PACLITAXEL
     Indication: PRODUCT USED FOR UNKNOWN INDICATION
     Route: 065
     Dates: start: 201909
  2. CARBOPLATIN. [Concomitant]
     Active Substance: CARBOPLATIN
     Indication: METASTASES TO LUNG
     Route: 065
     Dates: start: 201605
  3. CALSED [Suspect]
     Active Substance: AMRUBICIN HYDROCHLORIDE
     Indication: PRODUCT USED FOR UNKNOWN INDICATION
     Route: 040
  4. PACLITAXEL. [Concomitant]
     Active Substance: PACLITAXEL
     Indication: METASTASES TO LUNG
     Route: 065
     Dates: start: 201605
  5. CARBOPLATIN. [Concomitant]
     Active Substance: CARBOPLATIN
     Route: 065
     Dates: start: 201909
  6. S?1 MONOTHERAPY [Concomitant]
     Indication: METASTASES TO LUNG
     Route: 065
     Dates: start: 201812, end: 201908

REACTIONS (1)
  - Acute promyelocytic leukaemia [Unknown]
